FAERS Safety Report 25960969 (Version 3)
Quarter: 2025Q4

REPORT INFORMATION
  Report Type: Spontaneous
  Country: US (occurrence: US)
  Receive Date: 20251027
  Receipt Date: 20251203
  Transmission Date: 20260118
  Serious: No
  Sender: TOLMAR
  Company Number: US-Tolmar-TLM-2025-07777

PATIENT

DRUGS (3)
  1. ELIGARD [Suspect]
     Active Substance: LEUPROLIDE ACETATE
     Indication: Prostate cancer stage IV
     Dosage: DEC-2026; NOV-2026; NOV-2026?NDC: 62935-461-50?SN: 1573406286848?GTIN: 00362935461500?DOSE NOT ADMIN
  2. ELIGARD [Suspect]
     Active Substance: LEUPROLIDE ACETATE
     Dosage: REPLACEMENT DOSE GIVEN
  3. DEVICE [Suspect]
     Active Substance: DEVICE
     Indication: Prostate cancer stage IV
     Dosage: DEC-2026; NOV-2026; NOV-2026?NCD: 62935-461-50?SN: 1573406286848?GTIN: 00362935461500

REACTIONS (2)
  - Intercepted product preparation error [Unknown]
  - Product quality issue [Unknown]
